FAERS Safety Report 11471793 (Version 3)
Quarter: 2015Q4

REPORT INFORMATION
  Report Type: Report from Study
  Country: CA (occurrence: CA)
  Receive Date: 20150908
  Receipt Date: 20151113
  Transmission Date: 20160304
  Serious: Yes (Other)
  Sender: FDA-Public Use
  Company Number: CA-ASTELLAS-2015US030645

PATIENT
  Age: 65 Year
  Sex: Female

DRUGS (11)
  1. DETROL LA [Suspect]
     Active Substance: TOLTERODINE TARTRATE
     Indication: HYPERTONIC BLADDER
     Dosage: UNK UNK, UNKNOWN FREQ.
     Route: 065
     Dates: start: 20150513, end: 20150819
  2. HYDROCHLOROTHIAZIDE. [Concomitant]
     Active Substance: HYDROCHLOROTHIAZIDE
     Indication: HYPERTENSION
     Dosage: UNK UNK, UNKNOWN FREQ.
     Route: 048
     Dates: start: 2014
  3. MIRABEGRON [Suspect]
     Active Substance: MIRABEGRON
     Dosage: 25/8 MG, ONCE DAILY
     Route: 048
     Dates: start: 20150722, end: 20150819
  4. AZARGA [Concomitant]
     Active Substance: BRINZOLAMIDE\TIMOLOL MALEATE
     Indication: OPEN ANGLE GLAUCOMA
     Dosage: UNK UNK, UNKNOWN FREQ.
     Route: 047
     Dates: start: 20150707
  5. LATANOPROST. [Concomitant]
     Active Substance: LATANOPROST
     Indication: GLAUCOMA
     Dosage: UNK UNK, UNKNOWN FREQ.
     Route: 047
     Dates: start: 2013
  6. LEVOTHYROXINE. [Concomitant]
     Active Substance: LEVOTHYROXINE
     Indication: HYPOTHYROIDISM
     Dosage: UNK UNK, UNKNOWN FREQ.
     Route: 048
     Dates: start: 2010
  7. METOPROLOL [Concomitant]
     Active Substance: METOPROLOL
     Indication: HYPERTENSION
     Dosage: UNK UNK, UNKNOWN FREQ.
     Route: 048
     Dates: start: 1975
  8. MIRABEGRON [Suspect]
     Active Substance: MIRABEGRON
     Indication: HYPERTONIC BLADDER
     Dosage: 25.50/8 MG, ONCE DAILY
     Route: 048
     Dates: start: 20150513, end: 20150708
  9. ACETAMINOPHEN. [Concomitant]
     Active Substance: ACETAMINOPHEN
     Indication: OSTEOARTHRITIS
     Dosage: UNK UNK, UNKNOWN FREQ.
     Route: 048
     Dates: start: 2012
  10. ATORVASTATIN [Concomitant]
     Active Substance: ATORVASTATIN
     Indication: DYSLIPIDAEMIA
     Dosage: UNK UNK, UNKNOWN FREQ.
     Route: 048
     Dates: start: 2014
  11. ACETYLSALICYLIC ACID [Concomitant]
     Active Substance: ASPIRIN
     Indication: CARDIOVASCULAR EVENT PROPHYLAXIS
     Dosage: UNK UNK, UNKNOWN FREQ.
     Route: 048
     Dates: start: 20150617

REACTIONS (1)
  - Atrial fibrillation [Not Recovered/Not Resolved]

NARRATIVE: CASE EVENT DATE: 20150819
